FAERS Safety Report 4501376-7 (Version None)
Quarter: 2004Q4

REPORT INFORMATION
  Report Type: 
  Country: None (occurrence: None)
  Receive Date: 20041110
  Receipt Date: 20041101
  Transmission Date: 20050328
  Serious: Yes (Hospitalization, Other)
  Sender: FDA-Public Use
  Company Number: 2004242581US

PATIENT
  Sex: Female
  Weight: 48.5 kg

DRUGS (10)
  1. CELEBREX [Suspect]
     Indication: RHEUMATOID ARTHRITIS
     Dosage: 200 MG, QD, ORAL  : 200 MG, BID
     Route: 048
     Dates: end: 20030101
  2. CELEBREX [Suspect]
     Indication: RHEUMATOID ARTHRITIS
     Dosage: 200 MG, QD, ORAL  : 200 MG, BID
     Route: 048
     Dates: start: 20030101, end: 20041001
  3. METHOTREXATE [Suspect]
     Dates: end: 20041001
  4. HUMARA( ) [Suspect]
     Dates: end: 20041001
  5. EFFEXOR [Concomitant]
  6. PAXIL [Concomitant]
  7. DESYREL [Concomitant]
  8. PREVACID [Concomitant]
  9. PREDNISONE [Concomitant]
  10. LORTAB [Concomitant]

REACTIONS (20)
  - ARTHRITIS [None]
  - BLISTER [None]
  - BRONCHITIS [None]
  - BURNING SENSATION [None]
  - CHEST DISCOMFORT [None]
  - CHEST PAIN [None]
  - CONDITION AGGRAVATED [None]
  - CONTUSION [None]
  - DRUG EFFECT DECREASED [None]
  - DRUG INEFFECTIVE [None]
  - DYSPNOEA [None]
  - HEART VALVE INSUFFICIENCY [None]
  - INFECTION [None]
  - MEDICATION ERROR [None]
  - PAIN IN EXTREMITY [None]
  - PALPITATIONS [None]
  - RASH [None]
  - SKIN DISCOLOURATION [None]
  - SKIN REACTION [None]
  - UNEVALUABLE EVENT [None]
